FAERS Safety Report 13068441 (Version 1)
Quarter: 2016Q4

REPORT INFORMATION
  Report Type: Spontaneous
  Country: US (occurrence: US)
  Receive Date: 20161227
  Receipt Date: 20161227
  Transmission Date: 20170207
  Serious: Yes (Other)
  Sender: FDA-Public Use
  Company Number: None

PATIENT
  Age: 50 Year
  Sex: Male
  Weight: 45 kg

DRUGS (1)
  1. PROPOFOL. [Suspect]
     Active Substance: PROPOFOL
     Indication: ANAESTHESIA
     Dosage: ?          OTHER FREQUENCY:SURGICAL USE;?
     Route: 042
     Dates: start: 20161226, end: 20161226

REACTIONS (3)
  - Myoclonus [None]
  - Muscle tightness [None]
  - Product quality issue [None]

NARRATIVE: CASE EVENT DATE: 20161226
